FAERS Safety Report 6004443-4 (Version None)
Quarter: 2008Q4

REPORT INFORMATION
  Report Type: 
  Country: None (occurrence: None)
  Receive Date: 20081216
  Receipt Date: 20081209
  Transmission Date: 20090506
  Serious: Yes (Life-Threatening)
  Sender: FDA-Public Use
  Company Number: US-MERCK-0812USA00695

PATIENT
  Age: 17 Year
  Sex: Female
  Weight: 70 kg

DRUGS (1)
  1. SINGULAIR [Suspect]
     Indication: ASTHMA
     Route: 048
     Dates: start: 20070717, end: 20080606

REACTIONS (14)
  - AFFECTIVE DISORDER [None]
  - AGGRESSION [None]
  - ANXIETY [None]
  - ATTENTION DEFICIT/HYPERACTIVITY DISORDER [None]
  - DEPRESSION [None]
  - EDUCATIONAL PROBLEM [None]
  - FATIGUE [None]
  - HYPERSOMNIA [None]
  - MAJOR DEPRESSION [None]
  - PERSONALITY CHANGE [None]
  - PHYSICAL ASSAULT [None]
  - SLEEP STUDY ABNORMAL [None]
  - SUICIDAL BEHAVIOUR [None]
  - SUICIDAL IDEATION [None]
